FAERS Safety Report 8299283-X (Version None)
Quarter: 2012Q2

REPORT INFORMATION
  Report Type: 
  Country: None (occurrence: None)
  Receive Date: 20120419
  Receipt Date: 20120418
  Transmission Date: 20120825
  Serious: Yes (Hospitalization)
  Sender: FDA-Public Use
  Company Number: ES-PFIZER INC-2011057563

PATIENT
  Age: 16 Year
  Sex: Female
  Weight: 56 kg

DRUGS (22)
  1. POLARAMINE [Concomitant]
     Indication: HYPERSENSITIVITY
     Dosage: 5 MG, 4X/DAY
     Dates: start: 20110213, end: 20110213
  2. FLUCONAZOLE [Concomitant]
     Indication: CANDIDIASIS
     Dosage: 200 MG, 2X/DAY
     Route: 042
  3. DEXAMETHASONE [Suspect]
     Dosage: 9 MG, 1X/DAY
     Route: 037
     Dates: start: 20110216, end: 20110216
  4. DEPOCYT [Suspect]
     Dosage: 35 MG, 1X/DAY
     Route: 037
     Dates: start: 20110216, end: 20110216
  5. METHOTREXATE [Concomitant]
     Indication: ACUTE LYMPHOCYTIC LEUKAEMIA
     Dosage: 8300 MG, 24 HOURS CONTINOUS INFUSSION
     Route: 042
     Dates: start: 20110208, end: 20110208
  6. LEUCOVORIN CALCIUM [Concomitant]
     Indication: ACUTE LYMPHOCYTIC LEUKAEMIA
     Dosage: 25 MG, 4X/DAY
     Route: 042
     Dates: start: 20110210, end: 20110211
  7. CYTARABINE [Suspect]
     Indication: ACUTE LYMPHOCYTIC LEUKAEMIA
     Dosage: 3320 MG, 1X/DAY
     Route: 042
     Dates: start: 20110212, end: 20110213
  8. DEXAMETHASONE [Suspect]
     Dosage: 9 MG, 2X/DAY
     Route: 048
     Dates: start: 20110217, end: 20110220
  9. VINCRISTINE SULFATE [Suspect]
     Indication: ACUTE LYMPHOCYTIC LEUKAEMIA
     Dosage: 2 MG, 1X/DAY
     Route: 042
     Dates: start: 20110208, end: 20110208
  10. FUROSEMIDE [Concomitant]
     Indication: FLUID RETENTION
     Dosage: UNK MG, UNK
     Route: 042
     Dates: start: 20110208, end: 20110210
  11. OMEPRAZOLE [Concomitant]
     Indication: PROPHYLAXIS
     Dosage: 20 MG, 2X/DAY
     Route: 042
     Dates: start: 20110210
  12. ACETAMINOPHEN [Concomitant]
     Indication: PAIN
     Dosage: UNK
     Dates: start: 20110208, end: 20110216
  13. SEPTRA [Concomitant]
     Indication: PROPHYLAXIS
     Dosage: 800/160 MG EVERY 12 HOURS
     Route: 048
     Dates: start: 20110213, end: 20110214
  14. EMLA [Concomitant]
     Indication: ACUTE LYMPHOCYTIC LEUKAEMIA
     Dosage: 9 MG, 2X/DAY
     Route: 048
     Dates: start: 20110217, end: 20110220
  15. ASPARAGINASE [Suspect]
     Indication: ACUTE LYMPHOCYTIC LEUKAEMIA
     Dosage: 1600 IU, 1X/DAY
     Route: 030
     Dates: start: 20110213, end: 20110213
  16. PYRIDOXINE [Concomitant]
     Indication: ACUTE LYMPHOCYTIC LEUKAEMIA
     Dosage: 250 MG, 2X/DAY
     Route: 042
     Dates: start: 20110212, end: 20110214
  17. TORIOL [Concomitant]
     Indication: PROPHYLAXIS
     Dosage: 50 MG, 4X/DAY
     Route: 042
     Dates: start: 20110215, end: 20110216
  18. VORICONAZOLE [Suspect]
     Indication: ASPERGILLOSIS
     Dosage: 360 MG, 2X/DAY
     Route: 042
     Dates: start: 20110121, end: 20110122
  19. VORICONAZOLE [Suspect]
     Dosage: 240 MG, 2X/DAY
     Route: 042
     Dates: start: 20110122, end: 20110125
  20. MAXIDEX [Concomitant]
     Indication: ACUTE LYMPHOCYTIC LEUKAEMIA
     Dosage: 0.2 MG, 3X/DAY
     Route: 047
     Dates: start: 20110212, end: 20110214
  21. ZOFRAN [Concomitant]
     Indication: ANTIEMETIC SUPPORTIVE CARE
     Dosage: 8 MG, 1X/DAY
     Dates: start: 20110208, end: 20110208
  22. DEXAMETHASONE [Suspect]
     Indication: ACUTE LYMPHOCYTIC LEUKAEMIA
     Dosage: 11 MG, 3X/DAY
     Route: 048
     Dates: start: 20110208, end: 20110214

REACTIONS (1)
  - PANCYTOPENIA [None]
